FAERS Safety Report 5835605-4 (Version None)
Quarter: 2008Q3

REPORT INFORMATION
  Report Type: 
  Country: None (occurrence: None)
  Receive Date: 20080728
  Receipt Date: 20080605
  Transmission Date: 20090109
  Serious: No
  Sender: FDA-Public Use
  Company Number: 2008US001541

PATIENT
  Sex: Male

DRUGS (1)
  1. VAPRISOL [Suspect]
     Indication: HYPONATRAEMIA
     Dosage: 20 MG, PARENTERAL
     Route: 051

REACTIONS (1)
  - DRUG INEFFECTIVE [None]
